FAERS Safety Report 9515154 (Version 1)
Quarter: 2013Q1

REPORT INFORMATION
  Report Type: Spontaneous
  Country: US (occurrence: None)
  Receive Date: 20130305
  Receipt Date: 20130305
  Transmission Date: 20140127
  Serious: Yes (Other)
  Sender: FDA-Public Use
  Company Number: 163-21880-12121076

PATIENT
  Age: 61 Year
  Sex: Male

DRUGS (5)
  1. REVLIMID [Suspect]
     Indication: PLASMA CELL MYELOMA
     Route: 048
     Dates: start: 20130503
  2. HYDROMORPHONE (HYDROMORPHONE) [Concomitant]
  3. METHADONE (METHADONE) [Concomitant]
  4. WARFARIN (WARFARIN) [Concomitant]
  5. TYLENOL EXTRA STRENGTH (PARACETAMOL) [Concomitant]

REACTIONS (1)
  - Ecchymosis [None]
